FAERS Safety Report 7563107-6 (Version None)
Quarter: 2011Q2

REPORT INFORMATION
  Report Type: 
  Country: None (occurrence: None)
  Receive Date: 20110622
  Receipt Date: 20110608
  Transmission Date: 20111010
  Serious: Yes (Other)
  Sender: FDA-Public Use
  Company Number: CO-JNJFOC-20110605161

PATIENT
  Sex: Female

DRUGS (1)
  1. REMICADE [Suspect]
     Indication: PRODUCT USED FOR UNKNOWN INDICATION
     Route: 042

REACTIONS (4)
  - INFUSION RELATED REACTION [None]
  - DIARRHOEA [None]
  - NAUSEA [None]
  - HAEMATOCHEZIA [None]
